FAERS Safety Report 8218052-X (Version None)
Quarter: 2012Q1

REPORT INFORMATION
  Report Type: 
  Country: None (occurrence: None)
  Receive Date: 20120319
  Receipt Date: 20120313
  Transmission Date: 20120608
  Serious: No
  Sender: FDA-Public Use
  Company Number: US-PFIZER INC-2012019986

PATIENT
  Sex: Female
  Weight: 52.154 kg

DRUGS (3)
  1. CELEBREX [Suspect]
     Dosage: UNK
     Route: 048
  2. CELEBREX [Suspect]
     Indication: ARTHRITIS
     Dosage: 200 MG DAILY FOR 6 DAYS
     Route: 048
     Dates: start: 20120101
  3. CELEBREX [Suspect]
     Dosage: 200 MG, DAILY
     Route: 048
     Dates: start: 20120215, end: 20120223

REACTIONS (8)
  - OROPHARYNGEAL PAIN [None]
  - DRUG INEFFECTIVE [None]
  - THERAPEUTIC RESPONSE UNEXPECTED [None]
  - DEPRESSED MOOD [None]
  - CONSTIPATION [None]
  - ABDOMINAL DISCOMFORT [None]
  - ABDOMINAL DISTENSION [None]
  - ABDOMINAL PAIN UPPER [None]
